FAERS Safety Report 6621686-7 (Version None)
Quarter: 2010Q1

REPORT INFORMATION
  Report Type: 
  Country: None (occurrence: None)
  Receive Date: 20100223
  Receipt Date: 20100120
  Transmission Date: 20100710
  Serious: No
  Sender: FDA-Public Use
  Company Number: 005179

PATIENT
  Sex: Female
  Weight: 71.7 kg

DRUGS (8)
  1. CIMZIA [Suspect]
     Indication: CROHN'S DISEASE
     Dosage: 400 MG SUBCUTANEOUS
     Route: 058
     Dates: start: 20090601
  2. ASACOL [Concomitant]
  3. PREMARIN [Concomitant]
  4. FOLIC ACID [Concomitant]
  5. LOMOTIL /00034001/ [Concomitant]
  6. BENTYL [Concomitant]
  7. BENAZEPRIL W/HYDROCHLOROTHIAZIDE [Concomitant]
  8. PROTONIX /01263201/ [Concomitant]

REACTIONS (2)
  - ARTHRALGIA [None]
  - PAIN IN EXTREMITY [None]
